FAERS Safety Report 6556910-2 (Version None)
Quarter: 2010Q1

REPORT INFORMATION
  Report Type: 
  Country: None (occurrence: None)
  Receive Date: 20100126
  Receipt Date: 20100111
  Transmission Date: 20100710
  Serious: Yes (Disabling)
  Sender: FDA-Public Use
  Company Number: 8051572

PATIENT
  Age: 18 Year
  Sex: Female

DRUGS (2)
  1. KEPPRA [Suspect]
     Indication: EPILEPSY
     Dosage: 500 MG BID ORAL
     Route: 048
     Dates: start: 20070101
  2. LAMOTRIGINE [Suspect]
     Indication: EPILEPSY
     Dosage: 150 MG BID ORAL
     Route: 048
     Dates: start: 20070501

REACTIONS (3)
  - FOOT FRACTURE [None]
  - STRESS FRACTURE [None]
  - TIBIA FRACTURE [None]
